FAERS Safety Report 14248309 (Version 3)
Quarter: 2022Q3

REPORT INFORMATION
  Report Type: Report from Study
  Country: US (occurrence: US)
  Receive Date: 20171204
  Receipt Date: 20220922
  Transmission Date: 20221027
  Serious: Yes (Other)
  Sender: FDA-Public Use
  Company Number: US-TEVA-2017-US-828048

PATIENT
  Age: 60 Year
  Sex: Female
  Weight: 73 kg

DRUGS (1)
  1. ACTIQ [Suspect]
     Active Substance: FENTANYL CITRATE
     Indication: Nerve injury
     Route: 048
     Dates: end: 201710

REACTIONS (15)
  - Facial paralysis [Unknown]
  - Hepatic cirrhosis [Unknown]
  - Femur fracture [Unknown]
  - Tooth loss [Unknown]
  - Diarrhoea [Unknown]
  - Abdominal pain upper [Unknown]
  - Weight decreased [Unknown]
  - Malaise [Unknown]
  - Yawning [Not Recovered/Not Resolved]
  - Hypersensitivity [Unknown]
  - Blood pressure fluctuation [Not Recovered/Not Resolved]
  - Peripheral swelling [Unknown]
  - Drug withdrawal syndrome [Not Recovered/Not Resolved]
  - Pain [Unknown]
  - Product use in unapproved indication [Unknown]

NARRATIVE: CASE EVENT DATE: 20160101
